FAERS Safety Report 8075231-2 (Version None)
Quarter: 2012Q1

REPORT INFORMATION
  Report Type: 
  Country: None (occurrence: None)
  Receive Date: 20120127
  Receipt Date: 20120119
  Transmission Date: 20120608
  Serious: Yes (Other)
  Sender: FDA-Public Use
  Company Number: JP-CELGENEUS-087-21880-11060007

PATIENT
  Sex: Female

DRUGS (20)
  1. REVLIMID [Suspect]
     Indication: MULTIPLE MYELOMA
     Dosage: 10 MILLIGRAM
     Route: 048
     Dates: start: 20110421, end: 20110511
  2. REVLIMID [Suspect]
     Dosage: 10 MILLIGRAM
     Route: 048
     Dates: start: 20110616, end: 20110622
  3. URSO 250 [Concomitant]
     Indication: PROPHYLAXIS
     Dosage: 3 TABLET
     Route: 048
     Dates: start: 20110519
  4. SULFAMETHOXAZOLE [Concomitant]
     Indication: PROPHYLAXIS
     Dosage: 1 TABLET
     Route: 048
     Dates: start: 20110421
  5. LANSOPRAZOLE [Concomitant]
     Indication: PROPHYLAXIS
     Dosage: 1 TABLET
     Route: 048
     Dates: start: 20110421, end: 20110518
  6. VOGLIBOSE [Concomitant]
     Indication: DIABETES MELLITUS
     Dosage: 2 TABLET
     Route: 048
     Dates: start: 20110421, end: 20110518
  7. VOGLIBOSE [Concomitant]
     Dosage: 2 TABLET
     Route: 048
     Dates: start: 20110519
  8. MAGNESIUM OXIDE [Concomitant]
     Dosage: 3 TABLET
     Route: 048
     Dates: start: 20110421, end: 20110518
  9. REVLIMID [Suspect]
     Dosage: 10 MILLIGRAM
     Route: 048
     Dates: start: 20110706, end: 20110727
  10. AMLODIPINE [Concomitant]
     Dosage: .5 TABLET
     Route: 048
     Dates: start: 20110519
  11. REVLIMID [Suspect]
     Dosage: 10 MILLIGRAM
     Route: 048
     Dates: start: 20110519, end: 20110608
  12. CLARITHROMYCIN [Concomitant]
     Indication: PROPHYLAXIS
     Dosage: 2 TABLET
     Route: 048
     Dates: start: 20110425
  13. DORIPENEM MONOHYDRATE [Concomitant]
     Indication: PROPHYLAXIS
     Dosage: 1 BOTTLE
     Route: 041
     Dates: start: 20110503, end: 20110513
  14. REVLIMID [Suspect]
     Dosage: 5 MILLIGRAM
     Route: 048
     Dates: start: 20110818, end: 20110824
  15. ZOMETA [Concomitant]
     Indication: MULTIPLE MYELOMA
     Dosage: 3 MILLIGRAM
     Route: 041
     Dates: start: 20110713, end: 20110713
  16. REVLIMID [Suspect]
     Dosage: 5 MILLIGRAM
     Route: 048
     Dates: start: 20110901, end: 20110907
  17. AMLODIPINE [Concomitant]
     Indication: HYPERTENSION
     Dosage: 1 TABLET
     Route: 048
     Dates: start: 20110421, end: 20110518
  18. VFEND [Concomitant]
     Dosage: 6 TABLET
     Route: 048
     Dates: start: 20110421
  19. REVLIMID [Suspect]
     Dosage: 10 MILLIGRAM
     Route: 048
     Dates: start: 20110804, end: 20110817
  20. MEROPENEM [Concomitant]
     Dosage: 1 KIT
     Route: 041
     Dates: start: 20110421, end: 20110502

REACTIONS (4)
  - DISSEMINATED INTRAVASCULAR COAGULATION [None]
  - C-REACTIVE PROTEIN INCREASED [None]
  - NEUTROPENIA [None]
  - ANAEMIA [None]
